FAERS Safety Report 8589202-0 (Version None)
Quarter: 2012Q3

REPORT INFORMATION
  Report Type: 
  Country: None (occurrence: None)
  Receive Date: 20120813
  Receipt Date: 20120802
  Transmission Date: 20120928
  Serious: Yes (Hospitalization, Other)
  Sender: FDA-Public Use
  Company Number: DE-VERTEX PHARMACEUTICALS INC.-000000000000001356

PATIENT
  Sex: Male
  Weight: 74 kg

DRUGS (1)
  1. TELAPREVIR [Suspect]
     Indication: HEPATITIS C
     Dosage: DOSAGE FORM: TABLET
     Route: 048
     Dates: start: 20111001

REACTIONS (5)
  - CYSTITIS NONINFECTIVE [None]
  - DIARRHOEA [None]
  - RENAL FAILURE [None]
  - RASH [None]
  - NAUSEA [None]
